FAERS Safety Report 10227622 (Version 1)
Quarter: 2014Q2

REPORT INFORMATION
  Report Type: Report from Study
  Country: US (occurrence: US)
  Receive Date: 20140610
  Receipt Date: 20140610
  Transmission Date: 20141212
  Serious: Yes (Other)
  Sender: FDA-Public Use
  Company Number: US-NAPPMUNDI-USA-2014-0114707

PATIENT
  Sex: Male

DRUGS (2)
  1. OXY CR TAB [Suspect]
     Indication: INTERVERTEBRAL DISC DEGENERATION
     Dosage: UNK
     Route: 048
     Dates: start: 201202
  2. OXY CR TAB [Suspect]
     Indication: OSTEOARTHRITIS
     Dosage: 20 MG, TID
     Route: 048
     Dates: start: 20140510

REACTIONS (1)
  - Oesophageal polyp [Unknown]
